FAERS Safety Report 17528881 (Version 2)
Quarter: 2020Q2

REPORT INFORMATION
  Report Type: Spontaneous
  Country: US (occurrence: US)
  Receive Date: 20200311
  Receipt Date: 20200409
  Transmission Date: 20200713
  Serious: Yes (Death, Other)
  Sender: FDA-Public Use
  Company Number: US-GILEAD-2020-0454132

PATIENT
  Age: 61 Year
  Sex: Male
  Weight: 90.25 kg

DRUGS (1)
  1. EPCLUSA [Suspect]
     Active Substance: SOFOSBUVIR\VELPATASVIR
     Indication: HEPATITIS C
     Dosage: UNK UNK, QD
     Route: 065
     Dates: start: 20190715, end: 20191013

REACTIONS (2)
  - Asphyxia [Fatal]
  - Completed suicide [Fatal]

NARRATIVE: CASE EVENT DATE: 201912
